FAERS Safety Report 24172933 (Version 9)
Quarter: 2025Q2

REPORT INFORMATION
  Report Type: Report from Study
  Country: CA (occurrence: CA)
  Receive Date: 20240805
  Receipt Date: 20250602
  Transmission Date: 20250716
  Serious: Yes (Hospitalization, Other)
  Sender: JOHNSON AND JOHNSON
  Company Number: CA-JNJFOC-20240250528

PATIENT
  Age: 48 Year
  Sex: Female

DRUGS (3)
  1. SIMPONI [Suspect]
     Active Substance: GOLIMUMAB
     Indication: Juvenile idiopathic arthritis
     Route: 058
     Dates: start: 20231206
  2. SIMPONI [Suspect]
     Active Substance: GOLIMUMAB
     Route: 058
     Dates: start: 20240209
  3. SIMPONI [Suspect]
     Active Substance: GOLIMUMAB
     Route: 058

REACTIONS (13)
  - Lymphoma [Unknown]
  - Juvenile idiopathic arthritis [Not Recovered/Not Resolved]
  - Eye inflammation [Unknown]
  - Tooth abscess [Recovered/Resolved]
  - Lymphadenopathy [Unknown]
  - Infection [Unknown]
  - Neck mass [Unknown]
  - Pyrexia [Unknown]
  - Cough [Unknown]
  - Headache [Unknown]
  - Drug specific antibody [Unknown]
  - Nasal congestion [Unknown]
  - Off label use [Unknown]
